FAERS Safety Report 8439323 (Version 2)
Quarter: 2013Q2

REPORT INFORMATION
  Report Type: Spontaneous
  Country: US (occurrence: None)
  Receive Date: 20120104
  Receipt Date: 20120508
  Transmission Date: 20140414
  Serious: Yes (Other)
  Sender: FDA-Public Use
  Company Number: 2011HGS-002894

PATIENT
  Age: 55 Year
  Sex: Female
  Weight: 99.79 kg

DRUGS (5)
  1. BENLYSTA [Suspect]
     Indication: SYSTEMIC LUPUS ERYTHEMATOSUS
     Dosage: 1000 MG, 1 IN 28 D, INTRAVENOUS
     Route: 042
     Dates: start: 20111007
  2. PROZAC (FLUOXETINE HYDROCHLORIDE) (FLUOXETINE HYDROHCLORIDE) [Concomitant]
  3. LEVOTHROID (LEVOTHYROXINE SODIUM) (LEVOTHYROXINE SODIUM) [Concomitant]
  4. VITAMIN D (ERGOCALCIFEROL) (ERGOCALCIFEROL) [Concomitant]
  5. NORCO (VICODIN) (PARACETAMOL, HYDROCODONE BITARTRATE) [Concomitant]

REACTIONS (11)
  - SWELLING FACE [None]
  - NEURALGIA [None]
  - LOSS OF CONTROL OF LEGS [None]
  - JOINT WARMTH [None]
  - ARTHRALGIA [None]
  - HEADACHE [None]
  - UPPER RESPIRATORY TRACT INFECTION [None]
  - Burning sensation [None]
  - Swelling [None]
  - Fluid retention [None]
  - Pollakiuria [None]
